FAERS Safety Report 23484858 (Version 2)
Quarter: 2024Q1

REPORT INFORMATION
  Report Type: Spontaneous
  Country: CN (occurrence: CN)
  Receive Date: 20240206
  Receipt Date: 20240213
  Transmission Date: 20240409
  Serious: Yes (Hospitalization, Other)
  Sender: FDA-Public Use
  Company Number: CN-002147023-NVSC2024CN022739

PATIENT
  Age: 78 Year
  Sex: Male
  Weight: 70 kg

DRUGS (1)
  1. CARBAMAZEPINE [Suspect]
     Active Substance: CARBAMAZEPINE
     Indication: Trigeminal neuralgia
     Dosage: 0.7 G, BID
     Route: 048
     Dates: start: 20231102, end: 20231105

REACTIONS (4)
  - Epilepsy [Recovering/Resolving]
  - Loss of consciousness [Recovering/Resolving]
  - Mental disorder [Recovering/Resolving]
  - Overdose [Unknown]

NARRATIVE: CASE EVENT DATE: 20231104
